FAERS Safety Report 8860341 (Version 2)
Quarter: 2012Q4

REPORT INFORMATION
  Report Type: 
  Country: US (occurrence: US)
  Receive Date: 20121025
  Receipt Date: 20121210
  Transmission Date: 20130627
  Serious: Yes (Hospitalization, Other)
  Sender: FDA-Public Use
  Company Number: US-PFIZER INC-2012266557

PATIENT
  Age: 57 Year
  Sex: Female
  Weight: 106 kg

DRUGS (6)
  1. ZOLOFT [Suspect]
     Indication: DEPRESSION
     Dosage: 50 mg, 1x/day
     Route: 048
     Dates: start: 20120828, end: 20120911
  2. ZOLOFT [Suspect]
     Indication: ANXIETY
  3. KLONOPIN [Concomitant]
     Indication: PANIC ATTACKS
     Dosage: 4 mg,daily
     Dates: start: 2010
  4. KLONOPIN [Concomitant]
     Indication: ANXIETY
  5. REMERON [Concomitant]
     Indication: DEPRESSION
     Dosage: 30 mg, daily
     Dates: start: 2010
  6. LAMICTAL [Concomitant]
     Indication: BIPOLAR DISORDER
     Dosage: 200 mg, 2x/day
     Dates: start: 2010

REACTIONS (9)
  - Paraesthesia [Recovered/Resolved with Sequelae]
  - Dystonia [Not Recovered/Not Resolved]
  - Cognitive disorder [Recovered/Resolved with Sequelae]
  - Photophobia [Recovered/Resolved with Sequelae]
  - Tremor [Recovered/Resolved with Sequelae]
  - Sedation [Recovered/Resolved with Sequelae]
  - Malaise [Not Recovered/Not Resolved]
  - Speech disorder [Not Recovered/Not Resolved]
  - Memory impairment [Not Recovered/Not Resolved]
